FAERS Safety Report 9868170 (Version 2)
Quarter: 2014Q1

REPORT INFORMATION
  Report Type: Spontaneous
  Country: FR (occurrence: FR)
  Receive Date: 20140204
  Receipt Date: 20140206
  Transmission Date: 20141002
  Serious: Yes (Hospitalization)
  Sender: FDA-Public Use
  Company Number: PHHY2014FR012137

PATIENT
  Age: 67 Year
  Sex: Male

DRUGS (2)
  1. AZITHROMYCIN SANDOZ [Suspect]
     Route: 048
     Dates: start: 20130110, end: 20130110
  2. PARACETAMOL SANDOZ [Suspect]
     Dosage: 1 G, UNK
     Route: 048
     Dates: start: 20130110, end: 20130110

REACTIONS (3)
  - Loss of consciousness [Recovered/Resolved]
  - Malaise [Recovered/Resolved]
  - Erythema [Unknown]
